FAERS Safety Report 19512124 (Version 2)
Quarter: 2021Q3

REPORT INFORMATION
  Report Type: Spontaneous
  Country: SE (occurrence: SE)
  Receive Date: 20210709
  Receipt Date: 20210716
  Transmission Date: 20211014
  Serious: Yes (Life-Threatening, Hospitalization)
  Sender: FDA-Public Use
  Company Number: SE-MYLANLABS-2021M1039799

PATIENT
  Age: 41 Year
  Sex: Female

DRUGS (9)
  1. DOBUTAMINE                         /00493402/ [Suspect]
     Active Substance: DOBUTAMINE HYDROCHLORIDE
     Indication: CIRCULATORY COLLAPSE
     Route: 065
  2. DOBUTAMINE                         /00493402/ [Suspect]
     Active Substance: DOBUTAMINE HYDROCHLORIDE
     Indication: HAEMODYNAMIC INSTABILITY
  3. VENLAFAXINE [Suspect]
     Active Substance: VENLAFAXINE HYDROCHLORIDE
     Indication: BIPOLAR DISORDER
  4. NOREPINEPHRINE                     /00127502/ [Suspect]
     Active Substance: NOREPINEPHRINE BITARTRATE
     Indication: HYPOTENSION
     Route: 065
  5. EPINEPHRINE MYLAN [Suspect]
     Active Substance: EPINEPHRINE
     Indication: VENTRICULAR FIBRILLATION
  6. VENLAFAXINE [Suspect]
     Active Substance: VENLAFAXINE HYDROCHLORIDE
     Indication: ANTIDEPRESSANT THERAPY
     Dosage: 3 GRAM,INGESTED EXCESSIVE AMOUNTS (EXACT DOSAGE NOT STATED)
     Route: 048
  7. EPINEPHRINE MYLAN [Suspect]
     Active Substance: EPINEPHRINE
     Indication: HYPOTENSION
     Route: 065
  8. LAMOTRIGINE. [Concomitant]
     Active Substance: LAMOTRIGINE
     Indication: BIPOLAR DISORDER
     Route: 065
  9. NOREPINEPHRINE                     /00127502/ [Suspect]
     Active Substance: NOREPINEPHRINE BITARTRATE
     Indication: HAEMODYNAMIC INSTABILITY

REACTIONS (8)
  - Toxicity to various agents [Recovered/Resolved]
  - Seizure [Recovered/Resolved]
  - Stress cardiomyopathy [Recovered/Resolved]
  - Drug ineffective [Unknown]
  - Ventricular fibrillation [Recovered/Resolved]
  - Overdose [Recovered/Resolved]
  - Cardiogenic shock [Recovered/Resolved]
  - Circulatory collapse [Recovered/Resolved]
